FAERS Safety Report 8760101 (Version 1)
Quarter: 2012Q4

REPORT INFORMATION
  Report Type: Spontaneous
  Country: US (occurrence: None)
  Receive Date: 20120829
  Receipt Date: 20120829
  Transmission Date: 20130627
  Serious: Yes (Other)
  Sender: FDA-Public Use
  Company Number: None

PATIENT
  Age: 37 Year
  Sex: Female
  Weight: 58.97 kg

DRUGS (1)
  1. BUPROPION HYDROCHLORIDE XL [Suspect]
     Indication: DEPRESSION
     Route: 048
     Dates: start: 20120723, end: 20120828

REACTIONS (4)
  - Depression [None]
  - Insomnia [None]
  - Poor quality sleep [None]
  - Impaired work ability [None]
